FAERS Safety Report 9104951 (Version 2)
Quarter: 2013Q1

REPORT INFORMATION
  Report Type: Spontaneous
  Country: IT (occurrence: IT)
  Receive Date: 20130220
  Receipt Date: 20130307
  Transmission Date: 20140127
  Serious: Yes (Hospitalization)
  Sender: FDA-Public Use
  Company Number: IT-PFIZER INC-2013063224

PATIENT
  Age: 79 Year
  Sex: Male

DRUGS (8)
  1. MEDROL [Suspect]
     Dosage: 16 MG, 1X/DAY
     Route: 048
     Dates: start: 20110801
  2. CARDIOASPIRIN [Suspect]
     Indication: THROMBOSIS PROPHYLAXIS
     Dosage: 0.25 DF, 1X/DAY
     Route: 048
     Dates: start: 20120101
  3. SINTROM [Suspect]
     Dosage: 1 DF, AS NEEDED
     Route: 048
     Dates: start: 20120101
  4. BISOPROLOL FUMARATE [Concomitant]
     Dosage: 1.25 MG
     Route: 048
  5. NITRO-DUR [Concomitant]
     Dosage: UNK
     Route: 062
  6. LASIX [Concomitant]
     Route: 048
  7. LOSAPREX [Concomitant]
     Route: 048
  8. LANSOX [Concomitant]
     Route: 048

REACTIONS (1)
  - Melaena [Unknown]
